FAERS Safety Report 8084889 (Version 5)
Quarter: 2013Q2

REPORT INFORMATION
  Report Type: Spontaneous
  Country: US (occurrence: US)
  Receive Date: 20110810
  Receipt Date: 20130605
  Transmission Date: 20140414
  Serious: Yes (Hospitalization)
  Sender: FDA-Public Use
  Company Number: US-BAYER-2011-070118

PATIENT
  Age: 47 Year
  Sex: Female
  Weight: 79.37 kg

DRUGS (9)
  1. YAZ [Suspect]
     Indication: PREMENSTRUAL SYNDROME
     Dosage: UNK
     Route: 048
     Dates: start: 2007
  2. YAZ [Suspect]
     Indication: PREMENSTRUAL SYNDROME
  3. YAZ [Suspect]
     Indication: PREMENSTRUAL SYNDROME
     Dosage: UNK
  4. OXYBUTYNIN [Concomitant]
     Dosage: UNK
  5. SERTRALINE [Concomitant]
     Dosage: UNK
  6. OMEPRAZOL [Concomitant]
     Dosage: UNK
  7. FLAXSEED OIL [Concomitant]
     Dosage: UNK
     Dates: start: 2005
  8. OMEGA 3 [Concomitant]
     Dosage: UNK
     Dates: start: 2005
  9. EVENING PRIMROSE OIL [Concomitant]
     Dosage: UNK
     Dates: start: 1993, end: 2007

REACTIONS (12)
  - Pulmonary thrombosis [Recovered/Resolved]
  - Pulmonary thrombosis [Recovered/Resolved]
  - Thrombosis [Unknown]
  - Pain [Unknown]
  - Thrombosis [None]
  - Weight loss poor [None]
  - Exercise tolerance decreased [None]
  - Psychological trauma [Unknown]
  - Emotional distress [Unknown]
  - Anxiety [Unknown]
  - Fear [Unknown]
  - Injury [None]
